FAERS Safety Report 15450061 (Version 1)
Quarter: 2018Q4

REPORT INFORMATION
  Report Type: Spontaneous
  Country: US (occurrence: US)
  Receive Date: 20181001
  Receipt Date: 20181001
  Transmission Date: 20190204
  Serious: No
  Sender: FDA-Public Use
  Company Number: US-PFIZER INC-2018391367

PATIENT
  Age: 5 Year
  Sex: Female

DRUGS (1)
  1. GENOTROPIN MQ [Suspect]
     Active Substance: SOMATROPIN
     Dosage: 0.6 MG, DAILY
     Dates: start: 20180613

REACTIONS (8)
  - Red cell distribution width increased [Unknown]
  - Albumin globulin ratio decreased [Unknown]
  - Mean cell volume decreased [Unknown]
  - Red blood cell count increased [Unknown]
  - Mean cell haemoglobin decreased [Unknown]
  - Lymphocyte count increased [Unknown]
  - Protein total increased [Unknown]
  - Monocyte count increased [Unknown]
